FAERS Safety Report 11216269 (Version 3)
Quarter: 2017Q1

REPORT INFORMATION
  Report Type: Spontaneous
  Country: US (occurrence: US)
  Receive Date: 20150624
  Receipt Date: 20170302
  Transmission Date: 20170428
  Serious: Yes (Other)
  Sender: FDA-Public Use
  Company Number: US-ELI_LILLY_AND_COMPANY-US201506006867

PATIENT
  Sex: Female

DRUGS (13)
  1. CYMBALTA [Suspect]
     Active Substance: DULOXETINE HYDROCHLORIDE
     Indication: DEPRESSION
  2. PREMARIN [Concomitant]
     Active Substance: ESTROGENS, CONJUGATED
     Dosage: 1.25 MG, UNK
  3. SYMBICORT [Concomitant]
     Active Substance: BUDESONIDE\FORMOTEROL FUMARATE DIHYDRATE
     Dosage: UNK UNK, UNKNOWN
  4. CYMBALTA [Suspect]
     Active Substance: DULOXETINE HYDROCHLORIDE
     Indication: PAIN
     Dosage: 90 MG, QD
     Route: 065
     Dates: start: 201001, end: 201301
  5. ALBUTEROL                          /00139501/ [Concomitant]
     Active Substance: ALBUTEROL
     Dosage: 0.083 %, Q4 - 6H
  6. HYDROCHLOROTHIAZIDE W/LISINOPRIL [Concomitant]
     Active Substance: HYDROCHLOROTHIAZIDE\LISINOPRIL
     Dosage: 1 DF, QD
  7. VICODIN [Concomitant]
     Active Substance: ACETAMINOPHEN\HYDROCODONE BITARTRATE
     Dosage: 2 DF, OTHER
  8. NAPROXEN. [Concomitant]
     Active Substance: NAPROXEN
     Indication: MUSCULOSKELETAL CHEST PAIN
     Dosage: 550 MG, PRN
  9. VICODIN [Concomitant]
     Active Substance: ACETAMINOPHEN\HYDROCODONE BITARTRATE
     Dosage: 1 DF, Q4 - 6H
  10. SEROQUEL [Concomitant]
     Active Substance: QUETIAPINE FUMARATE
     Dosage: 300 MG, UNK
  11. DEPAKOTE [Concomitant]
     Active Substance: DIVALPROEX SODIUM
     Dosage: 4 DF, QD
  12. NYSTEX [Concomitant]
     Dosage: 10 ML, QID
  13. CYMBALTA [Suspect]
     Active Substance: DULOXETINE HYDROCHLORIDE
     Indication: ANXIETY

REACTIONS (18)
  - Drug withdrawal syndrome [Unknown]
  - Sensory disturbance [Unknown]
  - Suicidal ideation [Unknown]
  - Paraesthesia [Unknown]
  - Agitation [Unknown]
  - Skin irritation [Unknown]
  - Insomnia [Unknown]
  - Anxiety [Unknown]
  - Mood swings [Unknown]
  - Dizziness [Unknown]
  - Diarrhoea [Unknown]
  - Mental disorder [Unknown]
  - Nausea [Unknown]
  - Headache [Unknown]
  - Rash [Unknown]
  - Fatigue [Unknown]
  - Dysphoria [Unknown]
  - Affect lability [Unknown]
